FAERS Safety Report 21770858 (Version 1)
Quarter: 2022Q4

REPORT INFORMATION
  Report Type: Report from Study
  Country: CA (occurrence: CA)
  Receive Date: 20221223
  Receipt Date: 20221223
  Transmission Date: 20230112
  Serious: Yes (Hospitalization, Other)
  Sender: FDA-Public Use
  Company Number: CA-CELLTRION INC.-2022CA021409

PATIENT

DRUGS (1)
  1. TRUXIMA [Suspect]
     Active Substance: RITUXIMAB-ABBS
     Indication: Immune thrombocytopenia
     Dosage: 675 MG, WEEKLY X 4 WEEKS (TOTAL QUANTITY REQUESTED: 2700 MG
     Route: 042

REACTIONS (3)
  - Immune thrombocytopenia [Unknown]
  - Condition aggravated [Unknown]
  - Off label use [Unknown]
